FAERS Safety Report 11091463 (Version 2)
Quarter: 2015Q2

REPORT INFORMATION
  Report Type: Spontaneous
  Country: US (occurrence: US)
  Receive Date: 20150505
  Receipt Date: 20150601
  Transmission Date: 20150821
  Serious: Yes (Hospitalization, Other)
  Sender: FDA-Public Use
  Company Number: US-GLAXOSMITHKLINE-US2015058399

PATIENT
  Age: 78 Year
  Sex: Female

DRUGS (9)
  1. WARFARIN [Concomitant]
     Active Substance: WARFARIN
  2. BREO ELLIPTA [Suspect]
     Active Substance: FLUTICASONE FUROATE\VILANTEROL TRIFENATATE
     Indication: CHRONIC OBSTRUCTIVE PULMONARY DISEASE
     Dosage: 1 PUFF(S), U
     Route: 055
     Dates: start: 20150128, end: 20150131
  3. CALCIUM [Concomitant]
     Active Substance: CALCIUM
  4. ZYRTEC [Concomitant]
     Active Substance: CETIRIZINE HYDROCHLORIDE
  5. VITAMIN B12 [Concomitant]
     Active Substance: CYANOCOBALAMIN
  6. CARDIZEM [Concomitant]
     Active Substance: DILTIAZEM HYDROCHLORIDE
  7. DIGOXIN. [Concomitant]
     Active Substance: DIGOXIN
  8. BREO ELLIPTA [Suspect]
     Active Substance: FLUTICASONE FUROATE\VILANTEROL TRIFENATATE
     Indication: BRONCHITIS
  9. LOVASTATIN. [Concomitant]
     Active Substance: LOVASTATIN

REACTIONS (6)
  - Accident at home [Unknown]
  - Blood test abnormal [Unknown]
  - Product use issue [Recovered/Resolved]
  - Internal haemorrhage [Unknown]
  - Haematoma [Recovering/Resolving]
  - Somnambulism [Recovered/Resolved]

NARRATIVE: CASE EVENT DATE: 20150128
